FAERS Safety Report 21636941 (Version 2)
Quarter: 2022Q4

REPORT INFORMATION
  Report Type: Spontaneous
  Country: US (occurrence: US)
  Receive Date: 20221124
  Receipt Date: 20221125
  Transmission Date: 20230112
  Serious: Yes (Other)
  Sender: FDA-Public Use
  Company Number: US-BRISTOL-MYERS SQUIBB COMPANY-2022-139482

PATIENT
  Age: 75 Year
  Sex: Female

DRUGS (4)
  1. ONUREG [Suspect]
     Active Substance: AZACITIDINE
     Indication: Acute myeloid leukaemia
     Route: 048
     Dates: start: 2022
  2. ONUREG [Suspect]
     Active Substance: AZACITIDINE
     Dosage: DAILY FOR 7 DAYS
     Route: 048
  3. ONUREG [Suspect]
     Active Substance: AZACITIDINE
     Dosage: DAILY FOR 10 DAYS
     Route: 048
  4. ONUREG [Suspect]
     Active Substance: AZACITIDINE
     Dosage: DAILY FOR 12 DAYS
     Route: 048

REACTIONS (3)
  - Neutropenia [Unknown]
  - Off label use [Unknown]
  - Nausea [Unknown]

NARRATIVE: CASE EVENT DATE: 20220101
